FAERS Safety Report 13902747 (Version 3)
Quarter: 2018Q2

REPORT INFORMATION
  Report Type: Report from Study
  Country: DE (occurrence: DE)
  Receive Date: 20170824
  Receipt Date: 20180619
  Transmission Date: 20180711
  Serious: Yes (Other)
  Sender: FDA-Public Use
  Company Number: DE-BRISTOL-MYERS SQUIBB COMPANY-BMS-2017-075964

PATIENT
  Age: 63 Year
  Sex: Male
  Weight: 107 kg

DRUGS (1)
  1. APIXABAN [Suspect]
     Active Substance: APIXABAN
     Indication: EMBOLISM VENOUS
     Dosage: 5 MG, BID
     Route: 048
     Dates: start: 20170404

REACTIONS (2)
  - Tachycardia [Unknown]
  - Hypertension [Unknown]

NARRATIVE: CASE EVENT DATE: 20170510
